FAERS Safety Report 12396703 (Version 1)
Quarter: 2016Q2

REPORT INFORMATION
  Report Type: Spontaneous
  Country: US (occurrence: None)
  Receive Date: 20160523
  Receipt Date: 20160523
  Transmission Date: 20160815
  Serious: No
  Sender: FDA-Public Use
  Company Number: None

PATIENT
  Age: 59 Year
  Sex: Female
  Weight: 91.63 kg

DRUGS (6)
  1. GINGKO SMART [Concomitant]
  2. MULTIPLE VITAMIN [Concomitant]
     Active Substance: VITAMINS
  3. VITAMIN D [Concomitant]
     Active Substance: CHOLECALCIFEROL
  4. GENERIC FOR DIOVAN, 160 MG [Suspect]
     Active Substance: VALSARTAN
     Indication: HYPERTENSION
     Route: 048
     Dates: start: 20100921, end: 20140709
  5. ST JOHNS WORT [Concomitant]
     Active Substance: ST. JOHN^S WORT
  6. ESSENTIAL FATTY ACIDS 3-6+9 [Concomitant]

REACTIONS (5)
  - Disturbance in attention [None]
  - Impaired work ability [None]
  - Feeling abnormal [None]
  - Somnolence [None]
  - Confusional state [None]

NARRATIVE: CASE EVENT DATE: 20100101
